FAERS Safety Report 5199247-9 (Version None)
Quarter: 2007Q1

REPORT INFORMATION
  Report Type: 
  Country: None (occurrence: None)
  Receive Date: 20070104
  Receipt Date: 20061228
  Transmission Date: 20070707
  Serious: Yes (Life-Threatening)
  Sender: FDA-Public Use
  Company Number: TR-PFIZER INC-2006155955

PATIENT
  Age: 26 Year
  Sex: Female

DRUGS (4)
  1. SERTRALINE [Suspect]
     Dosage: DAILY DOSE:1000MG
     Route: 048
  2. ALPRAZOLAM [Suspect]
     Dosage: DAILY DOSE:25MG
     Route: 048
  3. MIANSERIN [Suspect]
     Dosage: DAILY DOSE:600MG
     Route: 048
  4. CITALOPRAM [Suspect]
     Dosage: DAILY DOSE:400MG
     Route: 048

REACTIONS (2)
  - OVERDOSE [None]
  - THERAPEUTIC AGENT TOXICITY [None]
